FAERS Safety Report 6437096-1 (Version None)
Quarter: 2009Q4

REPORT INFORMATION
  Report Type: 
  Country: None (occurrence: None)
  Receive Date: 20091112
  Receipt Date: 20091102
  Transmission Date: 20100525
  Serious: Yes (Hospitalization)
  Sender: FDA-Public Use
  Company Number: PHEH2009US14920

PATIENT
  Sex: Female

DRUGS (2)
  1. EXJADE [Suspect]
     Indication: SICKLE CELL ANAEMIA
     Dosage: 1500 MG/DAY
     Route: 048
     Dates: start: 20090902, end: 20090914
  2. EXJADE [Suspect]
     Indication: IRON OVERLOAD

REACTIONS (2)
  - MALAISE [None]
  - RASH [None]
